FAERS Safety Report 4982914-7 (Version None)
Quarter: 2006Q2

REPORT INFORMATION
  Report Type: 
  Country: None (occurrence: None)
  Receive Date: 20060420
  Receipt Date: 20060410
  Transmission Date: 20061013
  Serious: Yes (Hospitalization)
  Sender: FDA-Public Use
  Company Number: 2006BI005471

PATIENT
  Age: 46 Year
  Sex: Female

DRUGS (1)
  1. AVONEX [Suspect]
     Indication: MULTIPLE SCLEROSIS
     Dosage: 30 UG; QW; IM
     Route: 030
     Dates: start: 20000301

REACTIONS (6)
  - BURNING SENSATION [None]
  - CYST [None]
  - EAR PAIN [None]
  - HEADACHE [None]
  - HYPOKINESIA [None]
  - MULTIPLE DRUG OVERDOSE [None]
